FAERS Safety Report 10083446 (Version 2)
Quarter: 2014Q2

REPORT INFORMATION
  Report Type: Spontaneous
  Country: GB (occurrence: None)
  Receive Date: 20140415
  Receipt Date: 20140514
  Transmission Date: 20141212
  Serious: Yes (Hospitalization)
  Sender: FDA-Public Use
  Company Number: FK201401296

PATIENT
  Age: 42 Year
  Sex: Male

DRUGS (9)
  1. METHOTREXATE [Suspect]
     Indication: PRODUCT USED FOR UNKNOWN INDICATION
     Route: 048
     Dates: start: 20140308
  2. PIPERACILLIN SODIUM [Suspect]
     Indication: SEPSIS
     Dosage: NOT OTHERWISE SPECIFIED
     Route: 042
     Dates: start: 20140301, end: 20140308
  3. ALFACALCIDOL [Concomitant]
  4. BISOPROLOL [Concomitant]
  5. CLEXANE [Concomitant]
  6. EPREX [Concomitant]
  7. FOLIC ACID [Concomitant]
  8. PREDNISOLONE [Concomitant]
  9. RANITIDINE [Concomitant]

REACTIONS (2)
  - Drug interaction [None]
  - Neutropenia [None]
